FAERS Safety Report 10410464 (Version 1)
Quarter: 2014Q3

REPORT INFORMATION
  Report Type: Report from Study
  Country: MX (occurrence: MX)
  Receive Date: 20140826
  Receipt Date: 20140826
  Transmission Date: 20150326
  Serious: Yes (Other)
  Sender: FDA-Public Use
  Company Number: PHHY2014MX106393

PATIENT
  Age: 78 Year
  Sex: Male

DRUGS (1)
  1. CO-DIOVAN [Suspect]
     Active Substance: HYDROCHLOROTHIAZIDE\VALSARTAN
     Indication: HYPERTENSION
     Dosage: UNK UKN(320/12.5MG), UNK
     Route: 048

REACTIONS (4)
  - Malaise [Not Recovered/Not Resolved]
  - Vascular injury [Not Recovered/Not Resolved]
  - Movement disorder [Unknown]
  - Brain injury [Not Recovered/Not Resolved]

NARRATIVE: CASE EVENT DATE: 2014
